FAERS Safety Report 4360219-5 (Version None)
Quarter: 2004Q2

REPORT INFORMATION
  Report Type: 
  Country: None (occurrence: None)
  Receive Date: 20040513
  Receipt Date: 20040503
  Transmission Date: 20050107
  Serious: Yes (Hospitalization, Other)
  Sender: FDA-Public Use
  Company Number: 2004020328

PATIENT
  Sex: Female

DRUGS (17)
  1. LIPITOR [Suspect]
     Indication: ILL-DEFINED DISORDER
     Dosage: 40 MG (1 IN 1 D), ORAL
     Route: 048
     Dates: start: 19970101, end: 20040301
  2. CELECOXIB (CELECOXIB) [Concomitant]
  3. SULINDAC [Concomitant]
  4. ACETYLSALICYLIC ACID SRT [Concomitant]
  5. ASCORBIC ACID [Concomitant]
  6. AMITRIPTYLINE HCL [Concomitant]
  7. METOPROLOL SUCCINATE [Concomitant]
  8. FUROSEMIDE [Concomitant]
  9. GLUCERYL TRINITRATE (GLYCERYL TRINITRATE) [Concomitant]
  10. LISINOPRIL (LISINIOPRIL) [Concomitant]
  11. LOMOTIL [Concomitant]
  12. PANTOPRAZOLE (PANTOPRAZOLE) [Concomitant]
  13. TOLTERODINE L-TARTRATE (TOLTERODINE L-TARTRATE) [Concomitant]
  14. LIDOCAINE [Concomitant]
  15. PROPACET (DEXTROPROPOXYPHENE NAPSILATE, PARACETAMOL) [Concomitant]
  16. AMLODIPINE [Concomitant]
  17. SULINDAC [Concomitant]

REACTIONS (12)
  - ALANINE AMINOTRANSFERASE INCREASED [None]
  - ASPARTATE AMINOTRANSFERASE INCREASED [None]
  - BLOOD CREATINE PHOSPHOKINASE INCREASED [None]
  - BLOOD GLUCOSE INCREASED [None]
  - BLOOD POTASSIUM INCREASED [None]
  - DYSARTHRIA [None]
  - DYSPNOEA [None]
  - LOW DENSITY LIPOPROTEIN INCREASED [None]
  - MUSCLE ATROPHY [None]
  - MUSCULAR WEAKNESS [None]
  - RED BLOOD CELL SEDIMENTATION RATE INCREASED [None]
  - WHITE BLOOD CELL COUNT INCREASED [None]
